FAERS Safety Report 6883354-6 (Version None)
Quarter: 2010Q3

REPORT INFORMATION
  Report Type: 
  Country: None (occurrence: None)
  Receive Date: 20100727
  Receipt Date: 20071205
  Transmission Date: 20110219
  Serious: Yes (Hospitalization, Other)
  Sender: FDA-Public Use
  Company Number: US-PFIZER INC-2006044328

PATIENT
  Sex: Female
  Weight: 158.8 kg

DRUGS (3)
  1. CELEBREX [Suspect]
     Indication: RHEUMATOID ARTHRITIS
     Dosage: ONCE OR TWICE DAILY
     Route: 048
     Dates: start: 19991213
  2. BEXTRA [Suspect]
     Indication: RHEUMATOID ARTHRITIS
     Dates: start: 20020101
  3. VIOXX [Suspect]
     Dates: start: 20020101

REACTIONS (1)
  - DEEP VEIN THROMBOSIS [None]
